FAERS Safety Report 17656667 (Version 2)
Quarter: 2021Q4

REPORT INFORMATION
  Report Type: Report from Study
  Country: US (occurrence: US)
  Receive Date: 20200410
  Receipt Date: 20211206
  Transmission Date: 20220304
  Serious: No
  Sender: FDA-Public Use
  Company Number: US-NOVARTISTESTPH-NVSC2020US096960

PATIENT
  Age: 77 Year
  Sex: Female

DRUGS (1)
  1. COSENTYX [Suspect]
     Active Substance: SECUKINUMAB
     Indication: Psoriasis
     Dosage: 300 MG, OT (INJECT 2 PENS (300 MG) SUBCUTANEOUSLY ONCE AT WEEK 4 AND THEN EVERY 4 WEEKS)
     Route: 058

REACTIONS (1)
  - Sinusitis [Unknown]
